FAERS Safety Report 21680008 (Version 1)
Quarter: 2022Q4

REPORT INFORMATION
  Report Type: Spontaneous
  Country: None (occurrence: CN)
  Receive Date: 20221205
  Receipt Date: 20221205
  Transmission Date: 20230112
  Serious: Yes (Other)
  Sender: FDA-Public Use
  Company Number: CN-Jiangsu Hengrui Medicine Co., Ltd.-2135526

PATIENT

DRUGS (5)
  1. CISATRACURIUM BESYLATE [Suspect]
     Active Substance: CISATRACURIUM BESYLATE
     Indication: Maintenance of anaesthesia
  2. REMIMAZOLAM TOSYLATE [Suspect]
     Active Substance: REMIMAZOLAM TOSYLATE
  3. SUFENTANIL [Suspect]
     Active Substance: SUFENTANIL
  4. PROPOFOL [Suspect]
     Active Substance: PROPOFOL
  5. MIVACURIUM CHLORIDE [Suspect]
     Active Substance: MIVACURIUM CHLORIDE

REACTIONS (1)
  - Respiratory depression [Unknown]
